FAERS Safety Report 10103400 (Version 1)
Quarter: 2014Q2

REPORT INFORMATION
  Report Type: Spontaneous
  Country: DE (occurrence: DE)
  Receive Date: 20140424
  Receipt Date: 20140424
  Transmission Date: 20141212
  Serious: Yes (Congenital Anomaly)
  Sender: FDA-Public Use
  Company Number: DE-PFIZER INC-2014112008

PATIENT
  Sex: Male
  Weight: 3.56 kg

DRUGS (2)
  1. SERTRALINE HCL [Suspect]
     Indication: DEPRESSION
     Dosage: 150 MG, 1X/DAY (0. - 39.4 GESTATIONAL WEEK)
     Route: 064
     Dates: start: 20121216, end: 20130919
  2. FOLIC ACID [Concomitant]
     Indication: PROPHYLAXIS OF NEURAL TUBE DEFECT
     Dosage: 1ST TRIMESTER
     Route: 064

REACTIONS (2)
  - Maternal exposure during pregnancy [Not Recovered/Not Resolved]
  - Hypospadias [Not Recovered/Not Resolved]
